FAERS Safety Report 7729819-6 (Version None)
Quarter: 2011Q3

REPORT INFORMATION
  Report Type: 
  Country: None (occurrence: None)
  Receive Date: 20110817
  Receipt Date: 20110527
  Transmission Date: 20111222
  Serious: Yes (Hospitalization)
  Sender: FDA-Public Use
  Company Number: 201110498

PATIENT
  Sex: Female

DRUGS (1)
  1. LIORESAL [Suspect]
     Indication: MUSCLE SPASTICITY
     Dosage: DAILY, INTRATHECAL
     Route: 037

REACTIONS (11)
  - CONSTIPATION [None]
  - DIZZINESS [None]
  - MUSCLE SPASTICITY [None]
  - CHILLS [None]
  - VOMITING [None]
  - HEADACHE [None]
  - PARAESTHESIA [None]
  - UNDERDOSE [None]
  - GAIT DISTURBANCE [None]
  - NAUSEA [None]
  - BACK PAIN [None]
